FAERS Safety Report 6072386-6 (Version None)
Quarter: 2009Q1

REPORT INFORMATION
  Report Type: 
  Country: None (occurrence: None)
  Receive Date: 20090209
  Receipt Date: 20090209
  Transmission Date: 20090719
  Serious: No
  Sender: FDA-Public Use
  Company Number: None

PATIENT
  Age: 55 Year
  Sex: Female
  Weight: 77.1115 kg

DRUGS (1)
  1. DONNATAL [Suspect]
     Indication: IRRITABLE BOWEL SYNDROME
     Dosage: 1 TABLET EVERY 6 HOURS
     Dates: start: 20081230, end: 20090110

REACTIONS (4)
  - ABDOMINAL DISTENSION [None]
  - ABDOMINAL PAIN LOWER [None]
  - PAIN [None]
  - PRODUCT QUALITY ISSUE [None]
